FAERS Safety Report 13677159 (Version 1)
Quarter: 2017Q2

REPORT INFORMATION
  Report Type: Report from Study
  Country: CN (occurrence: CN)
  Receive Date: 20170622
  Receipt Date: 20170622
  Transmission Date: 20170830
  Serious: Yes (Other)
  Sender: FDA-Public Use
  Company Number: CN-ROCHE-1953749

PATIENT

DRUGS (1)
  1. ALTEPLASE [Suspect]
     Active Substance: ALTEPLASE
     Indication: ISCHAEMIC STROKE
     Dosage: (10 PERCENT OF THE TOTAL DOSE WAS THE INITIAL GIVEN DOSE AND THE REMAINING 90 PERCENT WAS ADMINISTER
     Route: 042

REACTIONS (1)
  - Disability [Unknown]
